FAERS Safety Report 8088213-1 (Version None)
Quarter: 2012Q1

REPORT INFORMATION
  Report Type: 
  Country: None (occurrence: None)
  Receive Date: 20120131
  Receipt Date: 20120125
  Transmission Date: 20120608
  Serious: No
  Sender: FDA-Public Use
  Company Number: US-BIOGENIDEC-2012BI003035

PATIENT
  Age: 49 Year
  Sex: Female

DRUGS (5)
  1. TYSABRI [Suspect]
     Indication: MULTIPLE SCLEROSIS
     Route: 042
     Dates: start: 20041228
  2. TYSABRI [Suspect]
     Route: 042
     Dates: start: 20111202
  3. TYSABRI [Suspect]
     Route: 042
     Dates: start: 20100223, end: 20110415
  4. AVONEX [Concomitant]
     Route: 030
     Dates: start: 20100201
  5. AVONEX [Concomitant]
     Indication: MULTIPLE SCLEROSIS
     Route: 030
     Dates: start: 20040924

REACTIONS (2)
  - NUCLEAR MAGNETIC RESONANCE IMAGING ABNORMAL [None]
  - GAIT DISTURBANCE [None]
